FAERS Safety Report 23974124 (Version 3)
Quarter: 2024Q3

REPORT INFORMATION
  Report Type: Report from Study
  Country: US (occurrence: US)
  Receive Date: 20240614
  Receipt Date: 20240809
  Transmission Date: 20241017
  Serious: Yes (Hospitalization, Disabling, Other)
  Sender: EMD SERONO INC
  Company Number: US-Merck Healthcare KGaA-2024024083

PATIENT
  Sex: Male
  Weight: 68 kg

DRUGS (2)
  1. MAVENCLAD [Suspect]
     Active Substance: CLADRIBINE
     Indication: Multiple sclerosis
     Dosage: YEAR ONE MONTH ONE THERAPY
     Route: 048
     Dates: start: 20230706, end: 20230710
  2. MAVENCLAD [Suspect]
     Active Substance: CLADRIBINE
     Dosage: YEAR ONE MONTH TWO THERAPY
     Route: 048
     Dates: start: 20230807, end: 20230811

REACTIONS (6)
  - Sepsis [Unknown]
  - Malignant melanoma [Unknown]
  - Hospitalisation [Unknown]
  - Leg amputation [Unknown]
  - Herpes zoster [Unknown]
  - Weight decreased [Unknown]
